FAERS Safety Report 8382832-0 (Version None)
Quarter: 2012Q2

REPORT INFORMATION
  Report Type: 
  Country: None (occurrence: None)
  Receive Date: 20120524
  Receipt Date: 20120511
  Transmission Date: 20120825
  Serious: Yes (Hospitalization)
  Sender: FDA-Public Use
  Company Number: CA-JNJFOC-20120511530

PATIENT
  Sex: Male
  Weight: 94.5 kg

DRUGS (2)
  1. REMICADE [Suspect]
     Indication: CROHN'S DISEASE
     Route: 042
     Dates: start: 20070701
  2. ANTIBIOTICS [Concomitant]
     Route: 065

REACTIONS (1)
  - ELECTIVE SURGERY [None]
